FAERS Safety Report 5214142-4 (Version None)
Quarter: 2007Q1

REPORT INFORMATION
  Report Type: 
  Country: None (occurrence: None)
  Receive Date: 20070122
  Receipt Date: 20070115
  Transmission Date: 20070707
  Serious: Yes (Death)
  Sender: FDA-Public Use
  Company Number: PHBS2007GB00974

PATIENT
  Age: 63 Year
  Sex: Male

DRUGS (2)
  1. CYCLOSPORINE [Suspect]
     Indication: LIVER TRANSPLANT
  2. AZATHIOPRINE [Suspect]
     Indication: LIVER TRANSPLANT
     Dates: end: 20060201

REACTIONS (6)
  - HEPATORENAL FAILURE [None]
  - LYMPH NODE PALPABLE [None]
  - LYMPHADENOPATHY [None]
  - METASTASES TO LIVER [None]
  - NEUROENDOCRINE CARCINOMA OF THE SKIN [None]
  - SKIN NEOPLASM EXCISION [None]
